FAERS Safety Report 9167612 (Version 3)
Quarter: 2013Q2

REPORT INFORMATION
  Report Type: Spontaneous
  Country: US (occurrence: US)
  Receive Date: 20130318
  Receipt Date: 20130416
  Transmission Date: 20140414
  Serious: No
  Sender: FDA-Public Use
  Company Number: US-TEVA-392121USA

PATIENT
  Sex: Male

DRUGS (3)
  1. QNASL [Suspect]
     Indication: RHINITIS SEASONAL
     Route: 045
  2. QNASL [Suspect]
     Indication: RHINITIS PERENNIAL
  3. FLONASE [Concomitant]

REACTIONS (3)
  - Epistaxis [Recovered/Resolved]
  - Sneezing [Unknown]
  - Intentional drug misuse [Recovered/Resolved]
